FAERS Safety Report 15553810 (Version 4)
Quarter: 2019Q1

REPORT INFORMATION
  Report Type: Spontaneous
  Country: US (occurrence: US)
  Receive Date: 20181026
  Receipt Date: 20190320
  Transmission Date: 20190417
  Serious: Yes (Hospitalization, Other)
  Sender: FDA-Public Use
  Company Number: US-SA-2018SA294625

PATIENT
  Age: 2 Year
  Sex: Female

DRUGS (1)
  1. LUMIZYME [Suspect]
     Active Substance: ALGLUCOSIDASE ALFA
     Indication: GLYCOGEN STORAGE DISEASE TYPE II
     Dosage: 350 MG, QOW
     Route: 041
     Dates: start: 20170503

REACTIONS (6)
  - Tooth extraction [Unknown]
  - Device occlusion [Recovered/Resolved]
  - Adenoidectomy [Unknown]
  - Hospitalisation [Unknown]
  - Device issue [Unknown]
  - Tonsillectomy [Unknown]

NARRATIVE: CASE EVENT DATE: 20181012
